FAERS Safety Report 8491975-2 (Version None)
Quarter: 2012Q3

REPORT INFORMATION
  Report Type: 
  Country: None (occurrence: None)
  Receive Date: 20120706
  Receipt Date: 20120628
  Transmission Date: 20120928
  Serious: Yes (Other)
  Sender: FDA-Public Use
  Company Number: FR-ABBOTT-12P-056-0947639-00

PATIENT
  Sex: Male

DRUGS (6)
  1. OXAZEPAM [Concomitant]
     Indication: DEPRESSION
  2. NEXIUM [Concomitant]
     Indication: PRODUCT USED FOR UNKNOWN INDICATION
  3. HUMIRA [Suspect]
     Indication: ANKYLOSING SPONDYLITIS
     Route: 058
     Dates: start: 20091101, end: 20101101
  4. MESALAMINE [Concomitant]
     Indication: ENTEROCOLITIS HAEMORRHAGIC
     Route: 048
  5. VALPROIC ACID [Concomitant]
     Indication: DEPRESSION
     Route: 048
  6. MIRTAZAPINE [Concomitant]
     Indication: DEPRESSION
     Dosage: UNIT DOSE: 50 MG/KG  1 TAB AT BEDTIME
     Route: 048

REACTIONS (6)
  - BALANCE DISORDER [None]
  - TUBERCULIN TEST POSITIVE [None]
  - CEREBELLAR SYNDROME [None]
  - ANKYLOSING SPONDYLITIS [None]
  - DIPLOPIA [None]
  - MULTIPLE SCLEROSIS [None]
